FAERS Safety Report 15796070 (Version 3)
Quarter: 2019Q1

REPORT INFORMATION
  Report Type: Spontaneous
  Country: US (occurrence: US)
  Receive Date: 20190108
  Receipt Date: 20190314
  Transmission Date: 20190417
  Serious: No
  Sender: FDA-Public Use
  Company Number: US-009507513-1812USA012207

PATIENT
  Age: 33 Year
  Sex: Male

DRUGS (1)
  1. ZEPATIER [Suspect]
     Active Substance: ELBASVIR\GRAZOPREVIR
     Indication: HEPATITIS C
     Dosage: UNK
     Dates: start: 20181219

REACTIONS (5)
  - Fatigue [Unknown]
  - Product dispensing error [Unknown]
  - Feeling abnormal [Unknown]
  - Nightmare [Unknown]
  - Dizziness [Unknown]

NARRATIVE: CASE EVENT DATE: 20181227
